FAERS Safety Report 7079773-8 (Version None)
Quarter: 2010Q4

REPORT INFORMATION
  Report Type: 
  Country: None (occurrence: None)
  Receive Date: 20101102
  Receipt Date: 20101025
  Transmission Date: 20110411
  Serious: Yes (Disabling, Other)
  Sender: FDA-Public Use
  Company Number: BR-SANOFI-AVENTIS-2010SA065419

PATIENT
  Age: 65 Year
  Sex: Male
  Weight: 75 kg

DRUGS (6)
  1. LANTUS [Suspect]
     Indication: TYPE 2 DIABETES MELLITUS
     Route: 058
     Dates: start: 20030101
  2. AUTOPEN 24 [Suspect]
     Dates: start: 20050101
  3. NOVORAPID [Concomitant]
     Indication: TYPE 2 DIABETES MELLITUS
     Route: 058
  4. ALL OTHER THERAPEUTIC PRODUCTS [Concomitant]
     Dates: start: 20090101
  5. COZAAR [Concomitant]
     Route: 048
  6. ATORVASTATIN [Concomitant]
     Route: 048
     Dates: start: 19920101

REACTIONS (5)
  - CEREBROVASCULAR ACCIDENT [None]
  - CONDITION AGGRAVATED [None]
  - HAEMODIALYSIS [None]
  - RENAL FAILURE [None]
  - WHEELCHAIR USER [None]
